FAERS Safety Report 9665427 (Version 1)
Quarter: 2013Q4

REPORT INFORMATION
  Report Type: Spontaneous
  Country: US (occurrence: None)
  Receive Date: 20131031
  Receipt Date: 20131031
  Transmission Date: 20140711
  Serious: No
  Sender: FDA-Public Use
  Company Number: None

PATIENT
  Age: 64 Year
  Sex: Female
  Weight: 79.38 kg

DRUGS (5)
  1. LISINOPRIL AND HYDROCHLOROTHIAZIDE [Suspect]
     Indication: HYPERTENSION
     Dosage: 1 PILL, DAILY, BY MOUTH
     Route: 048
     Dates: start: 201112, end: 201212
  2. TRIAMTERENE [Concomitant]
  3. CALCIUM [Concomitant]
  4. ASPIRIN [Concomitant]
  5. VITAMIN D [Concomitant]

REACTIONS (9)
  - Dizziness [None]
  - Loss of consciousness [None]
  - Vision blurred [None]
  - Amnesia [None]
  - Fatigue [None]
  - Insomnia [None]
  - Disturbance in attention [None]
  - Hypotension [None]
  - Syncope [None]
